FAERS Safety Report 7015153-9 (Version None)
Quarter: 2010Q3

REPORT INFORMATION
  Report Type: 
  Country: None (occurrence: None)
  Receive Date: 20100927
  Receipt Date: 20091026
  Transmission Date: 20110219
  Serious: No
  Sender: FDA-Public Use
  Company Number: US-ASTRAZENECA-2009SE05873

PATIENT
  Age: 27760 Day
  Sex: Female
  Weight: 87.5 kg

DRUGS (8)
  1. ARIMIDEX [Suspect]
     Route: 048
     Dates: start: 20080601
  2. VERAPAMIL ER [Concomitant]
  3. TRANDOLAPRIL [Concomitant]
  4. SIMVASTATIN [Concomitant]
  5. FUROSEMIDE [Concomitant]
  6. DICLOFENAC [Concomitant]
  7. CALCIUM [Concomitant]
  8. VITAMIN D [Concomitant]

REACTIONS (3)
  - BONE PAIN [None]
  - CHILLS [None]
  - FATIGUE [None]
